FAERS Safety Report 7795750-3 (Version None)
Quarter: 2011Q4

REPORT INFORMATION
  Report Type: 
  Country: None (occurrence: None)
  Receive Date: 20111004
  Receipt Date: 20110928
  Transmission Date: 20120403
  Serious: Yes (Other)
  Sender: FDA-Public Use
  Company Number: US-AMGEN-USASP2011050524

PATIENT
  Age: 35 Year
  Sex: Male
  Weight: 105.22 kg

DRUGS (5)
  1. URSO FORTE [Concomitant]
     Dosage: 500 MG, TID
  2. NPLATE [Suspect]
     Indication: IDIOPATHIC THROMBOCYTOPENIC PURPURA
     Dosage: UNK
     Dates: start: 20080601
  3. ALLOPURINOL [Concomitant]
     Dosage: 300 MG, QD
  4. CRESTOR [Concomitant]
     Dosage: 2.5 MG, UNK
  5. LORTAB [Concomitant]
     Dosage: 500 MG, UNK

REACTIONS (5)
  - MALAISE [None]
  - RHINORRHOEA [None]
  - COUGH [None]
  - ARTHRALGIA [None]
  - PLATELET COUNT DECREASED [None]
